FAERS Safety Report 10248757 (Version 6)
Quarter: 2015Q2

REPORT INFORMATION
  Report Type: Spontaneous
  Country: US (occurrence: US)
  Receive Date: 20140620
  Receipt Date: 20150519
  Transmission Date: 20150821
  Serious: Yes (Disabling, Other)
  Sender: FDA-Public Use
  Company Number: US-BAYER-2014-089353

PATIENT
  Age: 42 Year
  Sex: Male

DRUGS (1)
  1. CIPRO [Suspect]
     Active Substance: CIPROFLOXACIN HYDROCHLORIDE
     Indication: PROSTATITIS
     Dosage: 500 MG, BID
     Route: 048
     Dates: start: 20130507, end: 20130521

REACTIONS (20)
  - Tinnitus [Not Recovered/Not Resolved]
  - Vision blurred [None]
  - Disability [None]
  - Cranial nerve disorder [None]
  - Joint crepitation [None]
  - Prostatic pain [Not Recovered/Not Resolved]
  - Burning sensation [Not Recovered/Not Resolved]
  - Arthralgia [None]
  - Insomnia [Not Recovered/Not Resolved]
  - Burning sensation [None]
  - Nerve injury [None]
  - Impaired work ability [Not Recovered/Not Resolved]
  - Pain in jaw [None]
  - Neck pain [None]
  - Neuropathy peripheral [Not Recovered/Not Resolved]
  - Headache [Not Recovered/Not Resolved]
  - Condition aggravated [None]
  - Eye irritation [None]
  - Anosmia [None]
  - Pain [Not Recovered/Not Resolved]

NARRATIVE: CASE EVENT DATE: 201305
